FAERS Safety Report 18925085 (Version 2)
Quarter: 2021Q1

REPORT INFORMATION
  Report Type: Spontaneous
  Country: CA (occurrence: CA)
  Receive Date: 20210222
  Receipt Date: 20210301
  Transmission Date: 20210420
  Serious: Yes (Other)
  Sender: FDA-Public Use
  Company Number: CA-PFIZER INC-2021153391

PATIENT
  Sex: Female

DRUGS (1)
  1. PRISTIQ EXTENDED?RELEASE [Suspect]
     Active Substance: DESVENLAFAXINE SUCCINATE
     Indication: DEPRESSION
     Dosage: UNK

REACTIONS (5)
  - Lung neoplasm malignant [Unknown]
  - Road traffic accident [Unknown]
  - Pulmonary mass [Unknown]
  - Parathyroid disorder [Not Recovered/Not Resolved]
  - Shock [Unknown]
